FAERS Safety Report 12286177 (Version 3)
Quarter: 2017Q2

REPORT INFORMATION
  Report Type: Spontaneous
  Country: US (occurrence: US)
  Receive Date: 20160420
  Receipt Date: 20170606
  Transmission Date: 20170830
  Serious: Yes (Other)
  Sender: FDA-Public Use
  Company Number: US-AMGEN-USASP2016048440

PATIENT
  Age: 60 Year
  Sex: Male

DRUGS (1)
  1. REPATHA [Suspect]
     Active Substance: EVOLOCUMAB
     Indication: BLOOD CHOLESTEROL INCREASED
     Dosage: 140 MG, Q2WK
     Route: 065
     Dates: start: 201512

REACTIONS (10)
  - Hepatic enzyme increased [Unknown]
  - Tongue discolouration [Unknown]
  - Secretion discharge [Unknown]
  - Ear pain [Unknown]
  - Dry throat [Unknown]
  - Tongue coated [Unknown]
  - Hypersensitivity [Recovering/Resolving]
  - Oropharyngeal pain [Unknown]
  - Blood creatine phosphokinase increased [Unknown]
  - Pain [Unknown]
